FAERS Safety Report 20935024 (Version 1)
Quarter: 2022Q2

REPORT INFORMATION
  Report Type: Spontaneous
  Country: US (occurrence: US)
  Receive Date: 20220608
  Receipt Date: 20220608
  Transmission Date: 20220721
  Serious: Yes (Other)
  Sender: FDA-Public Use
  Company Number: US-PRINSTON PHARMACEUTICAL INC.-2022PRN00193

PATIENT
  Age: 56 Year
  Sex: Male

DRUGS (4)
  1. ARIPIPRAZOLE [Suspect]
     Active Substance: ARIPIPRAZOLE
     Indication: Psychomotor hyperactivity
     Dosage: 5 MG, 1X/DAY
     Route: 065
  2. ARIPIPRAZOLE [Suspect]
     Active Substance: ARIPIPRAZOLE
     Dosage: 10 MG, 1X/DAY
     Route: 065
  3. ARIPIPRAZOLE [Suspect]
     Active Substance: ARIPIPRAZOLE
     Dosage: 5 MG, 1X/DAY
     Route: 065
  4. BENZODIAZEPINE [Concomitant]
     Active Substance: BENZODIAZEPINE
     Indication: Alcohol withdrawal syndrome

REACTIONS (1)
  - Hypothermia [Recovered/Resolved]
